FAERS Safety Report 12549899 (Version 5)
Quarter: 2017Q2

REPORT INFORMATION
  Report Type: Spontaneous
  Country: US (occurrence: US)
  Receive Date: 20160712
  Receipt Date: 20170605
  Transmission Date: 20170830
  Serious: Yes (Other)
  Sender: FDA-Public Use
  Company Number: US-PFIZER INC-2016335536

PATIENT
  Age: 79 Year
  Sex: Female
  Weight: 75 kg

DRUGS (1)
  1. AROMASIN [Suspect]
     Active Substance: EXEMESTANE
     Indication: BREAST CANCER RECURRENT
     Dosage: 25 MG, DAILY (EVERY MORNING)
     Route: 048
     Dates: start: 201602

REACTIONS (7)
  - Clostridium difficile colitis [Recovered/Resolved]
  - Diarrhoea [Recovering/Resolving]
  - Gastric infection [Unknown]
  - Diverticulitis [Unknown]
  - Polyp [Unknown]
  - Pre-existing condition improved [Unknown]
  - Therapeutic response unexpected [Unknown]

NARRATIVE: CASE EVENT DATE: 201604
